FAERS Safety Report 4941780-6 (Version None)
Quarter: 2006Q1

REPORT INFORMATION
  Report Type: 
  Country: None (occurrence: None)
  Receive Date: 20060308
  Receipt Date: 20060227
  Transmission Date: 20060701
  Serious: Yes (Other)
  Sender: FDA-Public Use
  Company Number: 2006028527

PATIENT
  Age: 6 Year
  Sex: 0

DRUGS (1)
  1. BENADRYL [Suspect]
     Dosage: APPROXIMATELY 6 PILLS ONCE, ORAL
     Route: 048
     Dates: start: 20060201, end: 20060201

REACTIONS (2)
  - BLOOD ALCOHOL INCREASED [None]
  - OVERDOSE [None]
